FAERS Safety Report 16971755 (Version 1)
Quarter: 2019Q4

REPORT INFORMATION
  Report Type: Spontaneous
  Country: US (occurrence: US)
  Receive Date: 20190912
  Receipt Date: 20190912
  Transmission Date: 20200122
  Serious: Yes (Hospitalization)
  Sender: FDA-Public Use
  Company Number: None

PATIENT
  Age: 49 Year
  Sex: Female

DRUGS (8)
  1. LUPRON DEPOT [Concomitant]
     Active Substance: LEUPROLIDE ACETATE
  2. RESTASIS [Concomitant]
     Active Substance: CYCLOSPORINE
  3. XGEVA [Concomitant]
     Active Substance: DENOSUMAB
  4. FAMOTIDINE. [Concomitant]
     Active Substance: FAMOTIDINE
  5. IBRANCE [Suspect]
     Active Substance: PALBOCICLIB
     Indication: BREAST CANCER FEMALE
     Dosage: ?          OTHER FREQUENCY:DAILY FOR 21DAYS;?
     Route: 048
     Dates: start: 20171221
  6. ASPIRIN. [Concomitant]
     Active Substance: ASPIRIN
  7. LETROZOLE. [Concomitant]
     Active Substance: LETROZOLE
  8. TOPROL XL [Concomitant]
     Active Substance: METOPROLOL SUCCINATE

REACTIONS (4)
  - Fatigue [None]
  - White blood cell count decreased [None]
  - Hypoaesthesia [None]
  - Paraesthesia [None]

NARRATIVE: CASE EVENT DATE: 20190806
